FAERS Safety Report 25233090 (Version 1)
Quarter: 2025Q2

REPORT INFORMATION
  Report Type: Spontaneous
  Country: US (occurrence: US)
  Receive Date: 20250424
  Receipt Date: 20250424
  Transmission Date: 20250716
  Serious: Yes (Hospitalization, Other)
  Sender: ALEMBIC
  Company Number: US-ALEMBIC PHARMACUETICALS LIMITED-2025SCAL000372

PATIENT

DRUGS (3)
  1. CLONIDINE HYDROCHLORIDE [Suspect]
     Active Substance: CLONIDINE HYDROCHLORIDE
     Indication: Delirium tremens
     Route: 065
  2. HALDOL [Suspect]
     Active Substance: HALOPERIDOL
     Indication: Delirium tremens
     Route: 065
  3. OLANZAPINE [Suspect]
     Active Substance: OLANZAPINE
     Indication: Delirium tremens

REACTIONS (8)
  - Abdominal sepsis [Unknown]
  - Intestinal dilatation [Unknown]
  - Colitis ischaemic [Unknown]
  - Abdominal tenderness [Unknown]
  - Intestinal ischaemia [Unknown]
  - Intestinal pseudo-obstruction [Unknown]
  - Abdominal pain upper [Unknown]
  - Abdominal distension [Unknown]
